FAERS Safety Report 15618505 (Version 1)
Quarter: 2018Q4

REPORT INFORMATION
  Report Type: Spontaneous
  Country: US (occurrence: US)
  Receive Date: 20181114
  Receipt Date: 20181114
  Transmission Date: 20190205
  Serious: No
  Sender: FDA-Public Use
  Company Number: US-PFIZER INC-2016547748

PATIENT
  Age: 76 Year
  Sex: Male
  Weight: 124.2 kg

DRUGS (12)
  1. LYRICA [Suspect]
     Active Substance: PREGABALIN
     Indication: PERIPHERAL SENSORY NEUROPATHY
     Dosage: 150 MG, 3X/DAY (1 PO TID)(BY MOUTH 3 TIMES A DAY)
     Route: 048
  2. VITAMIN D3 [Concomitant]
     Active Substance: CHOLECALCIFEROL
     Dosage: 5000 IU, DAILY (1 BY MOUTH EVERY DAY)
     Route: 048
  3. BALANCED B-100 [Concomitant]
     Dosage: UNK, 1X/DAY
     Route: 048
  4. ASPIRIN [ACETYLSALICYLIC ACID] [Concomitant]
     Active Substance: ASPIRIN
     Dosage: 81 MG, DAILY
     Route: 048
  5. SYNTHROID [Concomitant]
     Active Substance: LEVOTHYROXINE SODIUM
     Dosage: 150 UG, 1X/DAY
     Route: 048
  6. ACETAMINOPHEN. [Concomitant]
     Active Substance: ACETAMINOPHEN
     Indication: PYREXIA
     Dosage: 500 MG, AS NEEDED (1-2 TABS BY MOUTH TWICE A DAY AS NEEDED FEVER OR MILD PAIN)
  7. MAGNESIUM OXIDE. [Concomitant]
     Active Substance: MAGNESIUM OXIDE
     Dosage: 250 MG, DAILY
  8. LOTRISONE [Concomitant]
     Active Substance: BETAMETHASONE DIPROPIONATE\CLOTRIMAZOLE
     Dosage: UNK, 2X/DAY [BETAMETHASONE DIPROPIONATE: 0.05%/ CLOTRIMAZOLE: 1%]
  9. KLOR-CON M20 [Concomitant]
     Active Substance: POTASSIUM CHLORIDE
     Dosage: 20 MEQ, DAILY
  10. HYDROCHLOROTHIAZIDE. [Concomitant]
     Active Substance: HYDROCHLOROTHIAZIDE
     Dosage: 25 MG, 1X/DAY (TAKE ONE TABLET IN THE MORNING)
  11. ACETAMINOPHEN;CODEINE [Concomitant]
     Indication: BACK PAIN
     Dosage: UNK, AS NEEDED [CODEINE: 30MG/ PARACETAMOL: 300 MG]
  12. ACETAMINOPHEN. [Concomitant]
     Active Substance: ACETAMINOPHEN
     Indication: PAIN

REACTIONS (6)
  - Withdrawal syndrome [Unknown]
  - Dyspnoea [Unknown]
  - Cerebral disorder [Unknown]
  - Discomfort [Unknown]
  - Intentional product use issue [Unknown]
  - Gait disturbance [Unknown]
